FAERS Safety Report 8863094 (Version 1)
Quarter: 2012Q4

REPORT INFORMATION
  Report Type: 
  Country: US (occurrence: US)
  Receive Date: 20121026
  Receipt Date: 20121026
  Transmission Date: 20130627
  Serious: Yes (Death, Other)
  Sender: FDA-Public Use
  Company Number: US-TEVA-359218USA

PATIENT
  Sex: Female

DRUGS (1)
  1. CLOZAPINE [Suspect]
     Indication: HUNTINGTON^S DISEASE
     Route: 048

REACTIONS (4)
  - Cardio-respiratory arrest [Fatal]
  - Failure to thrive [Fatal]
  - Huntington^s disease [Fatal]
  - Blood disorder [Recovered/Resolved with Sequelae]
